FAERS Safety Report 19176251 (Version 2)
Quarter: 2021Q2

REPORT INFORMATION
  Report Type: Spontaneous
  Country: BR (occurrence: BR)
  Receive Date: 20210424
  Receipt Date: 20210520
  Transmission Date: 20210717
  Serious: Yes (Death, Other)
  Sender: FDA-Public Use
  Company Number: NVSC2021BR092809

PATIENT
  Age: 16 Year
  Sex: Female

DRUGS (2)
  1. OMEPRAZOLE. [Concomitant]
     Active Substance: OMEPRAZOLE
     Indication: PRODUCT USED FOR UNKNOWN INDICATION
     Dosage: UNK
     Route: 048
  2. ELTROMBOPAG [Suspect]
     Active Substance: ELTROMBOPAG
     Indication: PRODUCT USED FOR UNKNOWN INDICATION
     Dosage: 50 MG, QD (4 MONTHS AGO)
     Route: 065

REACTIONS (11)
  - Pulmonary embolism [Fatal]
  - Respiratory failure [Fatal]
  - Blood creatinine increased [Unknown]
  - Hypotension [Unknown]
  - Leukocytosis [Unknown]
  - Cardio-respiratory arrest [Fatal]
  - Dyspnoea [Unknown]
  - Cough [Unknown]
  - Oxygen saturation decreased [Unknown]
  - Abdominal pain upper [Unknown]
  - Renal failure [Unknown]
